FAERS Safety Report 24454413 (Version 2)
Quarter: 2024Q4

REPORT INFORMATION
  Report Type: Report from Study
  Country: RU (occurrence: RU)
  Receive Date: 20241017
  Receipt Date: 20241018
  Transmission Date: 20250114
  Serious: No
  Sender: ROCHE
  Company Number: RU-ROCHE-3473589

PATIENT

DRUGS (1)
  1. RITUXIMAB [Suspect]
     Active Substance: RITUXIMAB
     Indication: Juvenile idiopathic arthritis
     Route: 042

REACTIONS (5)
  - Herpes zoster reactivation [Unknown]
  - Varicella [Unknown]
  - Pneumonia bacterial [Unknown]
  - Panniculitis [Unknown]
  - Infusion related reaction [Unknown]
